FAERS Safety Report 15288613 (Version 12)
Quarter: 2022Q4

REPORT INFORMATION
  Report Type: Spontaneous
  Country: BR (occurrence: BR)
  Receive Date: 20180817
  Receipt Date: 20221116
  Transmission Date: 20230113
  Serious: Yes (Other)
  Sender: FDA-Public Use
  Company Number: BR-GLAXOSMITHKLINE-BR2016GSK120527

PATIENT

DRUGS (6)
  1. BENLYSTA [Suspect]
     Active Substance: BELIMUMAB
     Indication: Systemic lupus erythematosus
     Dosage: 920 MG, UNK
     Route: 042
     Dates: start: 20151030
  2. BENLYSTA [Suspect]
     Active Substance: BELIMUMAB
     Dosage: UNK
     Dates: start: 20151030
  3. BENLYSTA [Suspect]
     Active Substance: BELIMUMAB
     Dosage: 120 MG
     Route: 042
     Dates: start: 20151030
  4. DIPYRONE [Suspect]
     Active Substance: DIPYRONE
     Indication: Product used for unknown indication
     Dosage: UNK
  5. CHLOROQUINE [Concomitant]
     Active Substance: CHLOROQUINE
     Indication: Product used for unknown indication
     Dosage: UNK
  6. HYDROXYCHLOROQUINE SULFATE [Concomitant]
     Active Substance: HYDROXYCHLOROQUINE SULFATE
     Indication: Product used for unknown indication
     Dosage: UNK

REACTIONS (17)
  - Loss of consciousness [Unknown]
  - Weight increased [Unknown]
  - Somnolence [Unknown]
  - Dizziness [Unknown]
  - Pain [Not Recovered/Not Resolved]
  - Dengue fever [Unknown]
  - Arthralgia [Recovered/Resolved]
  - Influenza [Unknown]
  - Rhinorrhoea [Unknown]
  - Cough [Unknown]
  - Drug ineffective [Unknown]
  - Off label use [Unknown]
  - Overdose [Not Recovered/Not Resolved]
  - Product dose omission issue [Unknown]
  - Circumstance or information capable of leading to medication error [Unknown]
  - Inappropriate schedule of product administration [Unknown]
  - Product prescribing issue [Unknown]

NARRATIVE: CASE EVENT DATE: 20210101
